FAERS Safety Report 16635286 (Version 1)
Quarter: 2019Q3

REPORT INFORMATION
  Report Type: Report from Study
  Country: JP (occurrence: JP)
  Receive Date: 20190726
  Receipt Date: 20190726
  Transmission Date: 20191004
  Serious: Yes (Other)
  Sender: FDA-Public Use
  Company Number: JP-ROCHE-2363674

PATIENT
  Sex: Female

DRUGS (2)
  1. ACTEMRA [Suspect]
     Active Substance: TOCILIZUMAB
     Indication: PRODUCT USED FOR UNKNOWN INDICATION
     Route: 058
  2. ROMOSOZUMAB [Concomitant]
     Active Substance: ROMOSOZUMAB
     Indication: OSTEOPOROSIS
     Dosage: EVENITY
     Route: 065

REACTIONS (1)
  - Compression fracture [Unknown]
